FAERS Safety Report 10011409 (Version 1)
Quarter: 2014Q1

REPORT INFORMATION
  Report Type: Report from Study
  Country: TR (occurrence: TR)
  Receive Date: 20140314
  Receipt Date: 20140314
  Transmission Date: 20141002
  Serious: Yes (Death)
  Sender: FDA-Public Use
  Company Number: TR-SA-2014SA032490

PATIENT
  Sex: 0

DRUGS (3)
  1. CISPLATIN [Suspect]
     Indication: NASOPHARYNGEAL CANCER
     Route: 065
  2. DOCETAXEL [Suspect]
     Indication: NASOPHARYNGEAL CANCER
     Route: 065
  3. THERAPEUTIC RADIOPHARMACEUTICALS [Suspect]
     Indication: NASOPHARYNGEAL CANCER
     Route: 065

REACTIONS (2)
  - Chronic obstructive pulmonary disease [Fatal]
  - Bronchospasm [Fatal]
